FAERS Safety Report 6324667 (Version 4)
Quarter: 2017Q3

REPORT INFORMATION
  Report Type: Spontaneous
  Country: US (occurrence: US)
  Receive Date: 20061017
  Receipt Date: 20170928
  Transmission Date: 20171128
  Serious: Yes (Hospitalization, Other)
  Sender: FDA-Public Use
  Company Number: US-PFIZER INC-2006124665

PATIENT
  Age: 55 Year
  Sex: Male
  Weight: 91 kg

DRUGS (3)
  1. VIOXX [Suspect]
     Active Substance: ROFECOXIB
     Indication: PAIN MANAGEMENT
     Dosage: 25 MG, 1X/DAY
     Dates: start: 20040101
  2. VIOXX [Suspect]
     Active Substance: ROFECOXIB
     Dosage: 50 MG, 1X/DAY
     Dates: end: 20040901
  3. CELEBREX [Suspect]
     Active Substance: CELECOXIB
     Indication: PAIN
     Dosage: UNK

REACTIONS (1)
  - Ischaemic stroke [Unknown]

NARRATIVE: CASE EVENT DATE: 20040419
